FAERS Safety Report 19886683 (Version 1)
Quarter: 2021Q3

REPORT INFORMATION
  Report Type: Spontaneous
  Country: US (occurrence: US)
  Receive Date: 20210927
  Receipt Date: 20210927
  Transmission Date: 20211014
  Serious: No
  Sender: FDA-Public Use
  Company Number: US-PFIZER INC-2021301282

PATIENT
  Age: 75 Year
  Sex: Female
  Weight: 56 kg

DRUGS (1)
  1. COLESTIPOL HCL [Suspect]
     Active Substance: COLESTIPOL HYDROCHLORIDE
     Indication: FUNCTIONAL GASTROINTESTINAL DISORDER
     Dosage: UNK

REACTIONS (3)
  - Faeces soft [Unknown]
  - Diarrhoea [Unknown]
  - Off label use [Unknown]
